FAERS Safety Report 8403053-9 (Version None)
Quarter: 2012Q2

REPORT INFORMATION
  Report Type: 
  Country: None (occurrence: None)
  Receive Date: 20120601
  Receipt Date: 20120522
  Transmission Date: 20120825
  Serious: Yes (Hospitalization, Other)
  Sender: FDA-Public Use
  Company Number: US-ELI_LILLY_AND_COMPANY-US201201000744

PATIENT
  Sex: Female
  Weight: 58.05 kg

DRUGS (7)
  1. FORTEO [Suspect]
     Indication: OSTEOPOROSIS
     Dosage: 20 UG, QD
     Route: 065
     Dates: start: 20111212
  2. PHENAZOPYRIDINE HCL TAB [Concomitant]
     Dosage: 1 DF, TID
  3. MAGNESIUM OXIDE [Concomitant]
  4. PANTOPRAZOLE [Concomitant]
  5. NYSTATIN [Concomitant]
  6. FORTEO [Suspect]
     Dosage: 20 UG, QD
     Route: 065
     Dates: start: 20111212
  7. ANTIBIOTICS [Concomitant]

REACTIONS (8)
  - DELIRIUM [None]
  - FUNGAL OESOPHAGITIS [None]
  - INJECTION SITE HAEMATOMA [None]
  - PAIN [None]
  - NEPHROLITHIASIS [None]
  - URINARY TRACT INFECTION [None]
  - CYSTITIS ESCHERICHIA [None]
  - RENAL FAILURE ACUTE [None]
